FAERS Safety Report 14907591 (Version 1)
Quarter: 2018Q2

REPORT INFORMATION
  Report Type: Spontaneous
  Country: US (occurrence: US)
  Receive Date: 20180428
  Receipt Date: 20180428
  Transmission Date: 20180711
  Serious: No
  Sender: FDA-Public Use
  Company Number: None

PATIENT
  Age: 58 Year
  Sex: Male

DRUGS (1)
  1. TREMFYA [Suspect]
     Active Substance: GUSELKUMAB
     Indication: PSORIASIS
     Dosage: ?          OTHER FREQUENCY:AT WEEK 4, THE;?
     Route: 058
     Dates: start: 20180403

REACTIONS (3)
  - Wrong schedule [None]
  - Wrong technique in product usage process [None]
  - Drug dose omission [None]

NARRATIVE: CASE EVENT DATE: 20180428
